FAERS Safety Report 5320556-4 (Version None)
Quarter: 2007Q2

REPORT INFORMATION
  Report Type: 
  Country: None (occurrence: None)
  Receive Date: 20070509
  Receipt Date: 20070502
  Transmission Date: 20071010
  Serious: Yes (Other)
  Sender: FDA-Public Use
  Company Number: US-ASTRAZENECA-2007UW05478

PATIENT

DRUGS (4)
  1. SEROQUEL [Suspect]
     Indication: DEPRESSION
     Route: 048
     Dates: start: 20020417, end: 20070101
  2. SEROQUEL [Suspect]
     Route: 048
     Dates: start: 20020401
  3. ZYPREXA [Concomitant]
     Dates: start: 19961007, end: 20030131
  4. RISPERDAL [Concomitant]
     Dates: start: 20000101, end: 20000101

REACTIONS (4)
  - DIABETES MELLITUS [None]
  - INJURY [None]
  - NEUROPATHY [None]
  - PANCREATITIS ACUTE [None]
